FAERS Safety Report 9664641 (Version 1)
Quarter: 2013Q4

REPORT INFORMATION
  Report Type: Spontaneous
  Country: US (occurrence: None)
  Receive Date: 20131031
  Receipt Date: 20131031
  Transmission Date: 20140711
  Serious: No
  Sender: FDA-Public Use
  Company Number: None

PATIENT
  Age: 49 Year
  Sex: Male
  Weight: 89.81 kg

DRUGS (1)
  1. ROGAINE FOAM [Suspect]
     Indication: ALOPECIA
     Dosage: APPLY TOPICALLY, TWICE DAILY, APPLIED TO A SURGACE, USUALLY THE SKIN
     Dates: start: 20131021, end: 20131021

REACTIONS (2)
  - Dizziness [None]
  - Nasopharyngitis [None]
